FAERS Safety Report 8990662 (Version 1)
Quarter: 2012Q4

REPORT INFORMATION
  Report Type: Report from Study
  Country: US (occurrence: US)
  Receive Date: 20121228
  Receipt Date: 20121228
  Transmission Date: 20130627
  Serious: Yes (Hospitalization, Other)
  Sender: FDA-Public Use
  Company Number: US-ROCHE-1173562

PATIENT
  Age: 70 Year
  Sex: Female
  Weight: 55 kg

DRUGS (3)
  1. BEVACIZUMAB [Suspect]
     Indication: OVARIAN EPITHELIAL CANCER
     Dosage: 15 mg/kg IV over 30-90 min on day 1 of cycle (cycle= 3 weeks)
     Route: 042
     Dates: start: 20110815
  2. CARBOPLATIN [Suspect]
     Indication: OVARIAN EPITHELIAL CANCER
     Dosage: last dose prior to SAE28/Nov/2011
     Route: 042
     Dates: start: 20110815
  3. PACLITAXEL [Suspect]
     Indication: OVARIAN EPITHELIAL CANCER
     Dosage: over 1 hr on days 1,8 and 15 of cycle 1 to 6; last dose rior to SAE:05/Dec/2011
     Route: 042
     Dates: start: 20110815

REACTIONS (6)
  - Embolism [Recovering/Resolving]
  - Volvulus of small bowel [Recovering/Resolving]
  - Anaemia [Recovering/Resolving]
  - Lymphopenia [Recovering/Resolving]
  - Proteinuria [Recovering/Resolving]
  - Wound infection [Unknown]
